FAERS Safety Report 9494439 (Version 1)
Quarter: 2013Q3

REPORT INFORMATION
  Report Type: Spontaneous
  Country: JP (occurrence: JP)
  Receive Date: 20130903
  Receipt Date: 20130903
  Transmission Date: 20140515
  Serious: Yes (Hospitalization)
  Sender: FDA-Public Use
  Company Number: PHHY2013JP095159

PATIENT
  Age: 72 Year
  Sex: Male

DRUGS (3)
  1. AMLODIPINE BESYLATE SANDOZ [Suspect]
     Indication: HYPERTENSION
     Dosage: 5 MG, UNK
     Route: 048
  2. ROSUVASTATIN CALCIUM [Concomitant]
     Indication: HYPERLIPIDAEMIA
  3. CETIRIZINE HYDROCHLORIDE [Concomitant]
     Dosage: 10 MG, UNK

REACTIONS (3)
  - VIth nerve disorder [Recovered/Resolved]
  - Visual impairment [Recovered/Resolved]
  - Eye movement disorder [Recovered/Resolved]
